FAERS Safety Report 11146279 (Version 9)
Quarter: 2016Q4

REPORT INFORMATION
  Report Type: Spontaneous
  Country: US (occurrence: US)
  Receive Date: 20150528
  Receipt Date: 20161213
  Transmission Date: 20170206
  Serious: No
  Sender: FDA-Public Use
  Company Number: US-PFIZER INC-2015175257

PATIENT
  Age: 67 Year
  Sex: Female

DRUGS (5)
  1. IBRANCE [Suspect]
     Active Substance: PALBOCICLIB
     Dosage: 125 MG, DAILY WITH MEAL FOR 21 DAYS, THEN 7 DAYS OFF AND REPEAT
     Route: 048
     Dates: start: 20150516
  2. IBRANCE [Suspect]
     Active Substance: PALBOCICLIB
     Dosage: 75 MG, UNK
     Dates: start: 20150516
  3. IBRANCE [Suspect]
     Active Substance: PALBOCICLIB
     Dosage: 100 MG, UNK
  4. IBRANCE [Suspect]
     Active Substance: PALBOCICLIB
     Dosage: 75 MG, UNK
     Dates: start: 20150515
  5. LETROZOLE. [Suspect]
     Active Substance: LETROZOLE
     Dosage: 2.5 MG, UNK
     Dates: start: 20150516

REACTIONS (12)
  - Constipation [Unknown]
  - Fatigue [Unknown]
  - Pain in extremity [Unknown]
  - Anxiety [Unknown]
  - Full blood count decreased [Unknown]
  - White blood cell count decreased [Unknown]
  - Skin discolouration [Unknown]
  - Dry skin [Unknown]
  - Decreased appetite [Unknown]
  - Diarrhoea [Unknown]
  - Sinusitis [Unknown]
  - Nail growth abnormal [Unknown]

NARRATIVE: CASE EVENT DATE: 2015
